FAERS Safety Report 9003104 (Version 1)
Quarter: 2013Q1

REPORT INFORMATION
  Report Type: Report from Study
  Country: AU (occurrence: AU)
  Receive Date: 20130108
  Receipt Date: 20130108
  Transmission Date: 20140127
  Serious: Yes (Other)
  Sender: FDA-Public Use
  Company Number: AU-ROCHE-1177503

PATIENT
  Sex: Female

DRUGS (6)
  1. TOCILIZUMAB [Suspect]
     Indication: RHEUMATOID ARTHRITIS
     Route: 042
     Dates: start: 20101004
  2. FOLIC ACID [Concomitant]
     Dosage: 1 TABLET
     Route: 065
  3. CALCIUM [Concomitant]
     Dosage: 1 TABLET
     Route: 065
  4. LAMICTAL [Concomitant]
     Indication: CONVULSION
     Route: 048
     Dates: start: 2007
  5. PREDNISOLONE [Concomitant]
     Indication: RHEUMATOID ARTHRITIS
     Route: 048
     Dates: start: 1990
  6. METHOTREXATE [Concomitant]
     Indication: RHEUMATOID ARTHRITIS
     Route: 048
     Dates: start: 1992

REACTIONS (3)
  - Alopecia [Unknown]
  - Hypotension [Unknown]
  - Dizziness [Recovered/Resolved]
